FAERS Safety Report 16022660 (Version 5)
Quarter: 2019Q2

REPORT INFORMATION
  Report Type: Spontaneous
  Country: AT (occurrence: AT)
  Receive Date: 20190301
  Receipt Date: 20190415
  Transmission Date: 20190711
  Serious: Yes (Life-Threatening, Other)
  Sender: FDA-Public Use
  Company Number: AT-PFIZER INC-2019090793

PATIENT
  Age: 84 Year
  Sex: Male
  Weight: 68 kg

DRUGS (7)
  1. PANTOPRAZOL [PANTOPRAZOLE] [Concomitant]
     Active Substance: PANTOPRAZOLE
     Dosage: 20 MG, 1X/DAY (1-0-0)
  2. XALKORI [Suspect]
     Active Substance: CRIZOTINIB
     Indication: NON-SMALL CELL LUNG CANCER
     Dosage: 250 MG, 1X/DAY (HALF DOSE)
     Dates: start: 20190104, end: 20190202
  3. AMLODIPINE [Concomitant]
     Active Substance: AMLODIPINE BESYLATE
     Dosage: 10 MG, 1X/DAY (0-0-1)
  4. THROMBO ASS [Concomitant]
     Active Substance: ASPIRIN
     Dosage: 100 MG, 1X/DAY (0-1-0)
  5. LOSARTAN COMP [Concomitant]
     Active Substance: HYDROCHLOROTHIAZIDE\LOSARTAN POTASSIUM
     Dosage: 100/25 MG, 1X/DAY (0-1-0)
  6. CITALOPRAM [Concomitant]
     Active Substance: CITALOPRAM HYDROBROMIDE
     Dosage: 20 MG, 1X/DAY (1-0-0)
  7. CONCOR [Concomitant]
     Active Substance: BISOPROLOL FUMARATE
     Dosage: 2.5 MG, 1X/DAY (0-0-1)

REACTIONS (5)
  - Hepatitis [Unknown]
  - Hepatic function abnormal [Unknown]
  - Acute hepatic failure [Not Recovered/Not Resolved]
  - Product use in unapproved indication [Unknown]
  - Acute kidney injury [Not Recovered/Not Resolved]
